FAERS Safety Report 4436768-8 (Version None)
Quarter: 2004Q3

REPORT INFORMATION
  Report Type: 
  Country: None (occurrence: None)
  Receive Date: 20040726
  Receipt Date: 20040503
  Transmission Date: 20050211
  Serious: No
  Sender: FDA-Public Use
  Company Number: USA040360996

PATIENT
  Age: 80 Year
  Sex: Female
  Weight: 55 kg

DRUGS (15)
  1. FORTEO [Suspect]
     Indication: OSTEOPOROSIS
     Dosage: 20 UG/1 DAY
     Dates: start: 20040210
  2. AMARYL [Concomitant]
  3. TENORMIN [Concomitant]
  4. SULAR [Concomitant]
  5. VASOTEC [Concomitant]
  6. CALTRATE (CALCIUM CARBONATE) [Concomitant]
  7. EXTRA STRENGTH TYLENOL [Concomitant]
  8. TRAMADOL HCL [Concomitant]
  9. CENTRUM [Concomitant]
  10. TIMOPTIC [Concomitant]
  11. XALATAN [Concomitant]
  12. DETROL [Concomitant]
  13. NEXIUM [Concomitant]
  14. FUROSEMIDE [Concomitant]
  15. PERI-COLACE [Concomitant]

REACTIONS (10)
  - ABDOMINAL DISTENSION [None]
  - DIABETES MELLITUS [None]
  - EMOTIONAL DISTRESS [None]
  - INJECTION SITE HAEMORRHAGE [None]
  - INJECTION SITE INDURATION [None]
  - INJECTION SITE PAIN [None]
  - NIGHTMARE [None]
  - PAIN IN EXTREMITY [None]
  - URINARY TRACT INFECTION [None]
  - WEIGHT DECREASED [None]
